FAERS Safety Report 4627388-0 (Version None)
Quarter: 2005Q2

REPORT INFORMATION
  Report Type: 
  Country: None (occurrence: None)
  Receive Date: 20050405
  Receipt Date: 20050328
  Transmission Date: 20051028
  Serious: Yes (Death, Other)
  Sender: FDA-Public Use
  Company Number: 163-20785-05030713

PATIENT
  Age: 29 Year
  Sex: Female

DRUGS (1)
  1. THALOMID (THALIDOMIDE) (200 MILLIGRAM, CAPSULES) [Suspect]
     Indication: GLIOBLASTOMA
     Dosage: 800 MG, DAILY, ORAL
     Route: 048
     Dates: start: 20040831

REACTIONS (4)
  - ATELECTASIS [None]
  - GLIOBLASTOMA [None]
  - MALIGNANT NEOPLASM PROGRESSION [None]
  - PNEUMOTHORAX [None]
